FAERS Safety Report 9462230 (Version 2)
Quarter: 2013Q4

REPORT INFORMATION
  Report Type: Spontaneous
  Country: US (occurrence: US)
  Receive Date: 20130816
  Receipt Date: 20131205
  Transmission Date: 20140711
  Serious: Yes (Hospitalization, Disabling, Other)
  Sender: FDA-Public Use
  Company Number: US-BAYER-2013-097006

PATIENT
  Age: 19 Year
  Sex: Female
  Weight: 73.92 kg

DRUGS (10)
  1. YAZ [Suspect]
     Indication: ACNE
  2. YAZ [Suspect]
     Indication: CONTRACEPTION
  3. YASMIN [Suspect]
     Indication: ACNE
     Dosage: UNK
     Dates: start: 20080602, end: 20110406
  4. YASMIN [Suspect]
     Indication: CONTRACEPTION
     Dosage: UNK
     Dates: start: 20101109, end: 20110406
  5. OCELLA [Suspect]
     Indication: ACNE
     Dosage: UNK
     Dates: start: 20080602, end: 20110406
  6. OCELLA [Suspect]
     Indication: CONTRACEPTION
     Dosage: UNK
     Dates: start: 20080813, end: 20101108
  7. ZARAH [Suspect]
     Dosage: UNK
     Dates: start: 20101128, end: 20110321
  8. ACCUTANE [Concomitant]
     Indication: ACNE
  9. IBUPROFEN [Concomitant]
     Dosage: 600 MG, PRN
     Dates: start: 20110406
  10. IRON [Concomitant]
     Dosage: UNK
     Route: 042
     Dates: start: 20110406

REACTIONS (6)
  - Pulmonary embolism [Recovered/Resolved]
  - Pulmonary fibrosis [None]
  - Injury [Recovered/Resolved]
  - Pain [Recovered/Resolved]
  - Emotional distress [None]
  - Lung disorder [Recovered/Resolved]
